FAERS Safety Report 4286830-8 (Version None)
Quarter: 2004Q1

REPORT INFORMATION
  Report Type: 
  Country: None (occurrence: None)
  Receive Date: 20040206
  Receipt Date: 20040130
  Transmission Date: 20041129
  Serious: Yes (Death, Hospitalization)
  Sender: FDA-Public Use
  Company Number: US-ROCHE-357642

PATIENT
  Age: 79 Year
  Sex: Female

DRUGS (1)
  1. CAPECITABINE [Suspect]
     Indication: COLON CANCER STAGE IV
     Route: 048

REACTIONS (3)
  - IMMUNOSUPPRESSION [None]
  - MALNUTRITION [None]
  - PNEUMATOSIS CYSTOIDES INTESTINALIS [None]
